FAERS Safety Report 21869045 (Version 6)
Quarter: 2025Q3

REPORT INFORMATION
  Report Type: Spontaneous
  Country: US (occurrence: US)
  Receive Date: 20230117
  Receipt Date: 20250725
  Transmission Date: 20251021
  Serious: No
  Sender: AMGEN
  Company Number: US-AMGEN-USASP2023006530

PATIENT
  Sex: Female

DRUGS (5)
  1. OTEZLA [Suspect]
     Active Substance: APREMILAST
     Indication: Psoriasis
     Dosage: 30 MILLIGRAM, BID
     Route: 048
     Dates: start: 20210209
  2. ESTRADIOL [Concomitant]
     Active Substance: ESTRADIOL
  3. PEG 3350 [Concomitant]
     Active Substance: POLYETHYLENE GLYCOL 3350
  4. POTASSIUM CHLORIDE [Concomitant]
     Active Substance: POTASSIUM CHLORIDE
  5. SODIUM [Concomitant]
     Active Substance: SODIUM

REACTIONS (4)
  - Illness [Unknown]
  - Rash [Not Recovered/Not Resolved]
  - Product dose omission issue [Unknown]
  - Discomfort [Not Recovered/Not Resolved]
